FAERS Safety Report 23938550 (Version 1)
Quarter: 2024Q2

REPORT INFORMATION
  Report Type: Spontaneous
  Country: US (occurrence: US)
  Receive Date: 20240604
  Receipt Date: 20240604
  Transmission Date: 20240716
  Serious: No
  Sender: FDA-Public Use
  Company Number: US-002147023-NVSC2024US116420

PATIENT
  Age: 82 Year
  Sex: Male
  Weight: 124 kg

DRUGS (1)
  1. LEQVIO [Suspect]
     Active Substance: INCLISIRAN SODIUM
     Indication: Blood cholesterol increased
     Dosage: UNK (1 INJECTION)
     Route: 065
     Dates: start: 20240402

REACTIONS (4)
  - Hypersensitivity [Unknown]
  - Pharyngeal oedema [Unknown]
  - Pain in extremity [Unknown]
  - Dyspnoea [Unknown]
